FAERS Safety Report 20578806 (Version 1)
Quarter: 2022Q1

REPORT INFORMATION
  Report Type: Spontaneous
  Country: AR (occurrence: AR)
  Receive Date: 20220310
  Receipt Date: 20220310
  Transmission Date: 20220423
  Serious: Yes (Other)
  Sender: FDA-Public Use
  Company Number: AR-SA-SAC20220225001258

PATIENT
  Age: 10 Year
  Sex: Male

DRUGS (1)
  1. LARONIDASE [Suspect]
     Active Substance: LARONIDASE
     Indication: Mucopolysaccharidosis I
     Dosage: 4 DF, QW (4 VIALS)
     Route: 041

REACTIONS (2)
  - Postoperative wound infection [Not Recovered/Not Resolved]
  - Elective surgery [Not Recovered/Not Resolved]

NARRATIVE: CASE EVENT DATE: 20220201
